FAERS Safety Report 8009452-1 (Version None)
Quarter: 2011Q4

REPORT INFORMATION
  Report Type: 
  Country: None (occurrence: None)
  Receive Date: 20111227
  Receipt Date: 20111223
  Transmission Date: 20120403
  Serious: Yes (Death)
  Sender: FDA-Public Use
  Company Number: US-PFIZER INC-2010108988

PATIENT
  Sex: Female

DRUGS (7)
  1. ULTRAM [Concomitant]
     Dosage: 50 MG, AS NEEDED
  2. ACETYLSALICYLIC ACID [Concomitant]
     Dosage: 81 MG, 1X/DAY
  3. LIPITOR [Suspect]
     Indication: BLOOD PRESSURE ABNORMAL
  4. FUROSEMIDE [Concomitant]
     Dosage: 20 MG, 1X/DAY
  5. NORVASC [Suspect]
     Dosage: UNK
  6. LIPITOR [Suspect]
     Indication: BLOOD CHOLESTEROL ABNORMAL
     Dosage: 5 MG, 1X/DAY
  7. METOPROLOL [Concomitant]
     Dosage: 50 MG, 1X/DAY

REACTIONS (1)
  - DEATH [None]
